FAERS Safety Report 10998166 (Version 3)
Quarter: 2015Q2

REPORT INFORMATION
  Report Type: Spontaneous
  Country: JP (occurrence: None)
  Receive Date: 20150406
  Receipt Date: 20150508
  Transmission Date: 20150821
  Serious: Yes (Hospitalization)
  Sender: FDA-Public Use
  Company Number: 2015SGN00496

PATIENT
  Age: 79 Year
  Sex: Male
  Weight: 46 kg

DRUGS (3)
  1. NESP (DARBEPOETIN ALFA) [Concomitant]
  2. FORTEO [Concomitant]
     Active Substance: TERIPARATIDE
  3. ADCETRIS [Suspect]
     Active Substance: BRENTUXIMAB VEDOTIN
     Indication: HODGKIN^S DISEASE
     Route: 041
     Dates: start: 20150123

REACTIONS (3)
  - Cytomegalovirus infection [None]
  - Malaise [None]
  - Rash macular [None]

NARRATIVE: CASE EVENT DATE: 20150223
